FAERS Safety Report 5613529-5 (Version None)
Quarter: 2008Q1

REPORT INFORMATION
  Report Type: 
  Country: None (occurrence: None)
  Receive Date: 20080130
  Receipt Date: 20080114
  Transmission Date: 20080703
  Serious: Yes (Death)
  Sender: FDA-Public Use
  Company Number: 2008S1000101

PATIENT
  Age: 65 Year
  Sex: Male

DRUGS (14)
  1. ROXICODONE [Suspect]
     Dosage: ; PO
     Route: 048
     Dates: end: 20060101
  2. METHADONE HCL [Suspect]
     Dosage: ; PO
     Route: 048
     Dates: end: 20060101
  3. DURACLON [Suspect]
     Dosage: ; PO
     Route: 048
     Dates: end: 20060101
  4. RISPERIDONE [Suspect]
     Dosage: ; PO
     Route: 048
     Dates: end: 20060101
  5. METAXALONE [Suspect]
     Dosage: ; PO
     Route: 048
     Dates: end: 20060101
  6. HEPARIN [Suspect]
     Dosage: ; PO
     Route: 048
     Dates: end: 20060101
  7. ESCITALOPRAM [Suspect]
     Dosage: ; PO
     Route: 048
     Dates: end: 20060101
  8. BUPROPION HCL [Suspect]
     Dosage: ; PO
     Route: 048
     Dates: end: 20060101
  9. CORTICOSTEROID [Suspect]
     Dosage: ; PO
     Route: 048
     Dates: end: 20060101
  10. ALBUTEROL [Suspect]
     Dosage: ; PO
     Route: 048
     Dates: end: 20060101
  11. HALOPERIDOL [Suspect]
     Dosage: ; PO
     Route: 048
     Dates: end: 20060101
  12. ACYCLOVIR [Suspect]
     Dosage: ; PO
     Route: 048
     Dates: end: 20060101
  13. VANCOMYCIN [Suspect]
     Dosage: ; PO
     Route: 048
     Dates: end: 20060101
  14. LAMOTRIGINE [Suspect]
     Dosage: ; PO
     Route: 048
     Dates: end: 20060101

REACTIONS (1)
  - ADVERSE DRUG REACTION [None]
